FAERS Safety Report 21449795 (Version 1)
Quarter: 2022Q4

REPORT INFORMATION
  Report Type: Spontaneous
  Country: BR (occurrence: BR)
  Receive Date: 20221013
  Receipt Date: 20221013
  Transmission Date: 20230112
  Serious: Yes (Other)
  Sender: FDA-Public Use
  Company Number: BR-ASTPRD-AER-2022-021573

PATIENT
  Sex: Female

DRUGS (8)
  1. MICAFUNGIN [Suspect]
     Active Substance: MICAFUNGIN
     Indication: Rash
     Route: 042
     Dates: start: 20220811, end: 20220815
  2. VANCOMYCIN [Suspect]
     Active Substance: VANCOMYCIN
     Indication: Product used for unknown indication
     Route: 042
     Dates: start: 20220718, end: 20220728
  3. VANCOMYCIN [Suspect]
     Active Substance: VANCOMYCIN
     Route: 042
     Dates: start: 20220804, end: 20220815
  4. MEROPENEM [Suspect]
     Active Substance: MEROPENEM
     Indication: Product used for unknown indication
     Route: 042
     Dates: start: 20220718, end: 20220728
  5. MEROPENEM [Suspect]
     Active Substance: MEROPENEM
     Route: 042
     Dates: start: 20220803, end: 20220815
  6. POLYMYXIN B [Suspect]
     Active Substance: POLYMYXIN B
     Indication: Product used for unknown indication
     Route: 042
     Dates: start: 20220718, end: 20220728
  7. POLYMYXIN B [Suspect]
     Active Substance: POLYMYXIN B
     Route: 042
     Dates: start: 20220803, end: 20220815
  8. DIPYRONE [Suspect]
     Active Substance: DIPYRONE
     Indication: Product used for unknown indication
     Dosage: UNK UNK, UNKNOWN FREQ.
     Route: 065

REACTIONS (1)
  - Drug reaction with eosinophilia and systemic symptoms [Recovering/Resolving]
